FAERS Safety Report 7193085-3 (Version None)
Quarter: 2010Q4

REPORT INFORMATION
  Report Type: 
  Country: None (occurrence: None)
  Receive Date: 20101221
  Receipt Date: 20101221
  Transmission Date: 20110411
  Serious: Yes (Other)
  Sender: FDA-Public Use
  Company Number: None

PATIENT
  Age: 60 Year
  Sex: Male
  Weight: 115.6672 kg

DRUGS (14)
  1. AVODART [Suspect]
     Indication: BENIGN PROSTATIC HYPERPLASIA
     Dosage: 0.4 MG ONCE PER DAY PO
     Route: 048
     Dates: start: 20020101, end: 20101217
  2. SPIRIVA [Concomitant]
  3. NATURAL FIBER [Concomitant]
  4. FLUTICASONE PROPIONATE [Concomitant]
  5. VITAMIN D [Concomitant]
  6. SIMVASTATIN [Concomitant]
  7. PROTONIX [Concomitant]
  8. GABAPENTIN [Concomitant]
  9. ABILIFY [Concomitant]
  10. TAMSULOSINO [Concomitant]
  11. SINGULAIR [Concomitant]
  12. PROAIR HFA [Concomitant]
  13. DESOXEMETASONE [Concomitant]
  14. LORATADINE [Concomitant]

REACTIONS (2)
  - BLADDER DISORDER [None]
  - DYSURIA [None]
